FAERS Safety Report 24269575 (Version 1)
Quarter: 2024Q3

REPORT INFORMATION
  Report Type: Spontaneous
  Country: LT (occurrence: LT)
  Receive Date: 20240830
  Receipt Date: 20240830
  Transmission Date: 20241017
  Serious: Yes (Death, Other)
  Sender: REGENERON
  Company Number: LT-REGENERON PHARMACEUTICALS, INC.-2024-117410

PATIENT
  Age: 79 Year
  Sex: Male

DRUGS (1)
  1. LIBTAYO [Suspect]
     Active Substance: CEMIPLIMAB-RWLC
     Indication: Squamous cell carcinoma
     Dosage: UNK
     Dates: start: 202206, end: 202311

REACTIONS (1)
  - COVID-19 pneumonia [Fatal]
